FAERS Safety Report 4273232-3 (Version None)
Quarter: 2004Q1

REPORT INFORMATION
  Report Type: 
  Country: None (occurrence: None)
  Receive Date: 20040116
  Receipt Date: 20040108
  Transmission Date: 20041129
  Serious: Yes (Hospitalization)
  Sender: FDA-Public Use
  Company Number: US-ROCHE-355447

PATIENT
  Age: 51 Year
  Sex: Female
  Weight: 101 kg

DRUGS (12)
  1. PEG-INTERFERON ALFA 2A (RO 25-8310) [Suspect]
     Dosage: GIVEN AT BED TIME
     Route: 058
     Dates: start: 20021219, end: 20031118
  2. BLINDED THYMOSIN ALFA 1 [Suspect]
     Dosage: TAKEN IN THE MORNING
     Route: 050
     Dates: start: 20021219, end: 20031113
  3. LASIX [Concomitant]
     Route: 048
     Dates: start: 20031121
  4. PREVACID [Concomitant]
     Route: 048
     Dates: start: 20031021
  5. K-DUR 10 [Concomitant]
     Route: 048
     Dates: start: 19920615
  6. VASOTEC [Concomitant]
     Route: 048
     Dates: start: 19920615
  7. NOVOLOG [Concomitant]
     Route: 058
     Dates: start: 20030408
  8. DEMADEX [Concomitant]
     Route: 048
     Dates: start: 19920615
  9. FLOVENT [Concomitant]
     Route: 055
     Dates: start: 19920615
  10. ALBUTEROL [Concomitant]
     Route: 055
     Dates: start: 19920615
  11. CELEBREX [Concomitant]
     Route: 048
     Dates: start: 20030930
  12. TYLENOL [Concomitant]
     Route: 048
     Dates: start: 20021219

REACTIONS (1)
  - HYPERPARATHYROIDISM [None]
